FAERS Safety Report 21153454 (Version 1)
Quarter: 2022Q3

REPORT INFORMATION
  Report Type: Spontaneous
  Country: CN (occurrence: CN)
  Receive Date: 20220731
  Receipt Date: 20220731
  Transmission Date: 20221027
  Serious: Yes (Hospitalization)
  Sender: FDA-Public Use
  Company Number: CN-JNJFOC-20220745323

PATIENT
  Age: 59 Year
  Sex: Male
  Weight: 45 kg

DRUGS (1)
  1. ERLEADA [Suspect]
     Active Substance: APALUTAMIDE
     Indication: Prostate cancer stage 0
     Route: 048
     Dates: start: 20220601, end: 20220705

REACTIONS (5)
  - Pruritus [Not Recovered/Not Resolved]
  - Alanine aminotransferase increased [Not Recovered/Not Resolved]
  - Aspartate aminotransferase increased [Recovering/Resolving]
  - Rash [Recovering/Resolving]
  - Hypoaesthesia [Recovering/Resolving]

NARRATIVE: CASE EVENT DATE: 20220705
